FAERS Safety Report 13151405 (Version 1)
Quarter: 2017Q1

REPORT INFORMATION
  Report Type: Spontaneous
  Country: US (occurrence: US)
  Receive Date: 20170125
  Receipt Date: 20170125
  Transmission Date: 20170428
  Serious: No
  Sender: FDA-Public Use
  Company Number: US-KADMON PHARMACEUTICALS, LLC-KAD201512-004546

PATIENT
  Age: 41 Year
  Sex: Male

DRUGS (6)
  1. VIEKIRA PAK [Suspect]
     Active Substance: DASABUVIR\OMBITASVIR\PARITAPREVIR\RITONAVIR
     Indication: HEPATITIS C
     Dosage: TABLET
     Route: 048
     Dates: start: 201511
  2. VIIBRYD [Suspect]
     Active Substance: VILAZODONE HYDROCHLORIDE
     Indication: DEPRESSION
  3. RIBAVIRIN. [Suspect]
     Active Substance: RIBAVIRIN
     Indication: HEPATITIS C
     Dosage: TABLET
     Route: 048
     Dates: start: 201511
  4. ADDERALL (OBETROL) [Concomitant]
  5. PRILOSEC [Concomitant]
     Active Substance: OMEPRAZOLE MAGNESIUM
  6. SUCRALFATE. [Concomitant]
     Active Substance: SUCRALFATE

REACTIONS (4)
  - Thirst [Unknown]
  - Dry mouth [Unknown]
  - Dehydration [Unknown]
  - Fatigue [Unknown]

NARRATIVE: CASE EVENT DATE: 201511
